FAERS Safety Report 7197434-1 (Version None)
Quarter: 2010Q4

REPORT INFORMATION
  Report Type: 
  Country: None (occurrence: None)
  Receive Date: 20101227
  Receipt Date: 20101215
  Transmission Date: 20110411
  Serious: Yes (Hospitalization)
  Sender: FDA-Public Use
  Company Number: US-JNJFOC-20101205786

PATIENT
  Age: 38 Year
  Sex: Male

DRUGS (2)
  1. LEVAQUIN [Suspect]
     Indication: PNEUMONIA
     Route: 042
  2. LEVAQUIN [Suspect]
     Route: 048

REACTIONS (5)
  - AGITATION [None]
  - ANGER [None]
  - CONFUSIONAL STATE [None]
  - MENTAL STATUS CHANGES [None]
  - PSYCHOTIC DISORDER [None]
